FAERS Safety Report 20506456 (Version 4)
Quarter: 2023Q1

REPORT INFORMATION
  Report Type: Report from Study
  Country: CA (occurrence: CA)
  Receive Date: 20220223
  Receipt Date: 20230126
  Transmission Date: 20230417
  Serious: Yes (Other)
  Sender: FDA-Public Use
  Company Number: CA-JNJFOC-20211006868

PATIENT
  Age: 62 Year
  Sex: Female
  Weight: 58 kg

DRUGS (2)
  1. STELARA [Suspect]
     Active Substance: USTEKINUMAB
     Indication: Crohn^s disease
     Dosage: EXPIRY: OCT-2024. PATIENT^S LAST INJECTION WITH 90MG STELARA WAS ON 12-APR-2022.
     Route: 058
  2. STELARA [Suspect]
     Active Substance: USTEKINUMAB

REACTIONS (6)
  - Gastrointestinal bacterial infection [Unknown]
  - Fungal foot infection [Recovered/Resolved]
  - Infected skin ulcer [Unknown]
  - Abdominal distension [Recovered/Resolved]
  - Rash pustular [Recovered/Resolved]
  - Inappropriate schedule of product administration [Unknown]

NARRATIVE: CASE EVENT DATE: 20211004
